FAERS Safety Report 4931964-5 (Version None)
Quarter: 2006Q1

REPORT INFORMATION
  Report Type: 
  Country: None (occurrence: None)
  Receive Date: 20060303
  Receipt Date: 20060220
  Transmission Date: 20060701
  Serious: Yes (Hospitalization)
  Sender: FDA-Public Use
  Company Number: US-MERCK-0602USA05106

PATIENT
  Age: 73 Year
  Sex: Male
  Weight: 85 kg

DRUGS (5)
  1. VIOXX [Suspect]
     Indication: ARTHRITIS
     Route: 048
     Dates: start: 20010101, end: 20040501
  2. VIOXX [Suspect]
     Route: 048
     Dates: start: 20010101, end: 20040501
  3. VIOXX [Suspect]
     Route: 048
     Dates: start: 20010101, end: 20040501
  4. DYAZIDE [Concomitant]
     Indication: OEDEMA PERIPHERAL
     Route: 065
     Dates: start: 19940101
  5. CARDURA [Concomitant]
     Indication: PROSTATE EXAMINATION ABNORMAL
     Route: 065
     Dates: start: 19900101

REACTIONS (2)
  - CORONARY ARTERY DISEASE [None]
  - MYOCARDIAL INFARCTION [None]
